FAERS Safety Report 25613552 (Version 2)
Quarter: 2025Q3

REPORT INFORMATION
  Report Type: Spontaneous
  Country: EU (occurrence: EU)
  Receive Date: 20250728
  Receipt Date: 20250804
  Transmission Date: 20251021
  Serious: Yes (Hospitalization, Other)
  Sender: JOHNSON AND JOHNSON
  Company Number: EU-JNJFOC-20250733786

PATIENT
  Sex: Male

DRUGS (5)
  1. XARELTO [Suspect]
     Active Substance: RIVAROXABAN
     Indication: Deep vein thrombosis
  2. XARELTO [Suspect]
     Active Substance: RIVAROXABAN
  3. XARELTO [Suspect]
     Active Substance: RIVAROXABAN
  4. XARELTO [Suspect]
     Active Substance: RIVAROXABAN
     Dosage: 15 MG, BID
  5. HEPARIN [Suspect]
     Active Substance: HEPARIN SODIUM
     Indication: Product used for unknown indication

REACTIONS (6)
  - Anal fistula repair [Unknown]
  - Deep vein thrombosis [Recovering/Resolving]
  - Paraplegia [Unknown]
  - Off label use [Unknown]
  - Mobility decreased [Unknown]
  - Product label confusion [Unknown]

NARRATIVE: CASE EVENT DATE: 20250101
